FAERS Safety Report 4775483-8 (Version None)
Quarter: 2005Q3

REPORT INFORMATION
  Report Type: 
  Country: None (occurrence: None)
  Receive Date: 20050920
  Receipt Date: 20050914
  Transmission Date: 20060218
  Serious: Yes (Life-Threatening, Hospitalization, Other)
  Sender: FDA-Public Use
  Company Number: HQWYE424706JAN05

PATIENT
  Age: 44 Year
  Sex: Female
  Weight: 78.54 kg

DRUGS (4)
  1. RAPAMUNE [Suspect]
     Indication: PROPHYLAXIS AGAINST TRANSPLANT REJECTION
     Dosage: ORAL
     Route: 048
     Dates: start: 20041109, end: 20041211
  2. CELLCEPT [Suspect]
     Dosage: 1000 MG 2X PER 1 DAY, ORAL
     Route: 048
  3. PREDNISONE [Suspect]
     Dosage: 10 MG 1X PER 1 DAY, ORAL
     Route: 048
  4. ZENAPAX [Suspect]

REACTIONS (7)
  - BLOOD CREATININE INCREASED [None]
  - BLOOD UREA INCREASED [None]
  - HYPOTENSION [None]
  - HYPOVOLAEMIA [None]
  - IMMUNOSUPPRESSION [None]
  - PANCYTOPENIA [None]
  - UPPER RESPIRATORY TRACT INFECTION [None]
